FAERS Safety Report 10532211 (Version 2)
Quarter: 2014Q4

REPORT INFORMATION
  Report Type: Spontaneous
  Country: US (occurrence: US)
  Receive Date: 20141021
  Receipt Date: 20141210
  Transmission Date: 20150529
  Serious: No
  Sender: FDA-Public Use
  Company Number: US-PFIZER INC-2014284550

PATIENT
  Age: 55 Year
  Sex: Male

DRUGS (10)
  1. CARVEDILOL. [Concomitant]
     Active Substance: CARVEDILOL
  2. FOLIC ACID. [Concomitant]
     Active Substance: FOLIC ACID
  3. PREDNISONE. [Concomitant]
     Active Substance: PREDNISONE
  4. FOSAMAX [Concomitant]
     Active Substance: ALENDRONATE SODIUM
  5. AMLODIPINE BESYLATE- BENAZEPRIL [Concomitant]
     Dosage: AMLODIPINE 10MG/BENAZEPRIL 40MG
  6. PROTANDIM [Concomitant]
     Active Substance: DIETARY SUPPLEMENT
  7. XELJANZ [Suspect]
     Active Substance: TOFACITINIB CITRATE
     Indication: RHEUMATOID ARTHRITIS
     Dosage: 5 MG, 2X/DAY
     Route: 048
     Dates: start: 2013, end: 201411
  8. GLYBURIDE-METFORMIN HCL [Concomitant]
     Dosage: GLIBENCLAMIDE 2.5/METFORMIN 500
  9. IMURAN [Concomitant]
     Active Substance: AZATHIOPRINE
  10. NEXIUM [Concomitant]
     Active Substance: ESOMEPRAZOLE MAGNESIUM

REACTIONS (2)
  - Abdominal pain upper [Unknown]
  - Hepatic function abnormal [Unknown]
